FAERS Safety Report 10065106 (Version 1)
Quarter: 2014Q2

REPORT INFORMATION
  Report Type: Spontaneous
  Country: US (occurrence: US)
  Receive Date: 20140408
  Receipt Date: 20140408
  Transmission Date: 20141212
  Serious: No
  Sender: FDA-Public Use
  Company Number: US-009507513-1403USA013346

PATIENT
  Sex: Female

DRUGS (1)
  1. NUVARING [Suspect]
     Dosage: ONE RING INSERTED FOR THREE WEEKS
     Route: 067
     Dates: start: 2013

REACTIONS (4)
  - Device difficult to use [Unknown]
  - Incorrect product storage [Unknown]
  - Product quality issue [Unknown]
  - Drug dose omission [Unknown]
